FAERS Safety Report 8474522-0 (Version None)
Quarter: 2012Q2

REPORT INFORMATION
  Report Type: 
  Country: None (occurrence: None)
  Receive Date: 20120628
  Receipt Date: 20120627
  Transmission Date: 20120825
  Serious: Yes (Hospitalization, Disabling, Other)
  Sender: FDA-Public Use
  Company Number: PHEH2007US02903

PATIENT
  Sex: Female

DRUGS (58)
  1. ZOLADEX [Concomitant]
     Dosage: 10.8 MG, UNK
     Route: 058
  2. LIDODERM [Concomitant]
  3. NAPROXEN (ALEVE) [Concomitant]
  4. LIPITOR [Concomitant]
     Dosage: 10 MG, QD
  5. TAMOXIFEN CITRATE [Concomitant]
     Indication: BREAST CANCER
     Dosage: 20 MG, QD
     Dates: start: 20030605
  6. LEVOFLOXACIN [Concomitant]
     Dosage: 500 MG, ONCE/SINGLE
  7. PROCHLORPERAZINE [Concomitant]
     Dosage: 10 MG, PRN
  8. CELEBREX [Concomitant]
     Dosage: 200 MG, BID
  9. MULTI-VITAMINS [Concomitant]
  10. METOPROLOL SUCCINATE [Concomitant]
     Dosage: UNK
  11. FENTANYL [Concomitant]
     Route: 062
  12. DIPHENHYDRAMINE HCL [Concomitant]
     Dosage: 50 MG, QW
  13. HYDROMORPHONE HCL [Concomitant]
     Dosage: 2 MG, UNK
     Route: 048
  14. PRILOSEC [Concomitant]
     Dosage: UNK
  15. OXYCODONE HCL [Concomitant]
  16. AVASTIN [Concomitant]
  17. TAXOL [Concomitant]
  18. METRONIDAZOLE [Concomitant]
     Dosage: 500 MG, UNK
     Route: 048
  19. DESIPRAMIDE HCL [Concomitant]
     Dosage: 10 MG, PRN
  20. CELEXA [Concomitant]
     Dosage: 40 MG, QD
  21. GRAPE SEED [Concomitant]
  22. FASLODEX [Concomitant]
  23. TRICOR [Concomitant]
  24. NIASPAN [Concomitant]
  25. LOVAZA [Concomitant]
  26. HYDROCORTISONE SODIUM SUCCINATE [Concomitant]
     Dosage: 100 MG, PRN
  27. SENNA-S (DOCUSATE SODIUM/SENNOSIDES) [Concomitant]
     Route: 048
  28. ZOMETA [Suspect]
     Indication: BONE NEOPLASM MALIGNANT
     Dates: start: 20060101, end: 20060417
  29. ZOMETA [Suspect]
     Indication: BONE LOSS
  30. TRICHLORMETHIAZIDE [Concomitant]
     Dosage: 48 MG, QD
  31. FISH OIL [Concomitant]
  32. CRESTOR [Concomitant]
  33. XELODA [Concomitant]
  34. VANCOMYCIN [Concomitant]
     Dosage: 1 G, QD
  35. ACETAMINOPHEN [Concomitant]
  36. ASPIRIN [Concomitant]
     Dosage: 81 MG, QD
  37. NEXIUM [Concomitant]
     Route: 048
  38. MECLIZINE [Concomitant]
     Dosage: UNK
  39. EFFEXOR [Concomitant]
     Dosage: 37.5 MG, QD
     Route: 048
  40. CHANTIX [Concomitant]
     Indication: SMOKING CESSATION THERAPY
     Dosage: 0.5 MG, BID
  41. FAMOTIDINE [Concomitant]
     Dosage: 20 MG, QW
  42. EPINEPHRINE [Concomitant]
     Dosage: 1 MG, PRN
  43. AROMASIN [Concomitant]
     Indication: BREAST CANCER
  44. CITALOPRAM HYDROBROMIDE [Concomitant]
     Dosage: 40 MG, QD
  45. PERIDEX [Concomitant]
  46. METFORMIN HCL [Concomitant]
  47. LANTUS [Concomitant]
  48. MORPHINE [Concomitant]
     Dosage: 4 MG, UNK
  49. FEMARA [Concomitant]
     Dosage: 2.5 MG, QD
  50. XANAX [Concomitant]
     Dosage: 0.5 MG, TID
  51. NEURONTIN [Concomitant]
  52. LOMOTIL [Concomitant]
     Dosage: UNK
  53. DEXAMETHASONE [Concomitant]
     Dosage: 20 MG, QW
  54. HYDROXYZINE [Concomitant]
     Dosage: 25 MG, QW
     Route: 048
  55. DIAZEPAM [Concomitant]
     Dosage: 10 MG, UNK
     Route: 048
  56. DAPTOMYCIN [Concomitant]
     Dosage: 440 MG, UNK
  57. INSULIN LISPRO [Concomitant]
     Dosage: UNK
  58. PROTONIX [Concomitant]
     Dosage: 40 MG, QD

REACTIONS (65)
  - GENERAL PHYSICAL HEALTH DETERIORATION [None]
  - METASTASES TO SOFT TISSUE [None]
  - MUSCLE SPASMS [None]
  - AORTIC ARTERIOSCLEROSIS [None]
  - PATHOLOGICAL FRACTURE [None]
  - HAEMANGIOMA [None]
  - ALOPECIA [None]
  - ROAD TRAFFIC ACCIDENT [None]
  - METASTASES TO LIVER [None]
  - VERTEBRAL FORAMINAL STENOSIS [None]
  - DIABETES MELLITUS [None]
  - DYSLIPIDAEMIA [None]
  - NAUSEA [None]
  - CANDIDIASIS [None]
  - CARDIAC DISORDER [None]
  - FOLLICULITIS [None]
  - DECREASED INTEREST [None]
  - BONE DISORDER [None]
  - DEPRESSION [None]
  - INSOMNIA [None]
  - HYPERTENSION [None]
  - LYMPHADENOPATHY [None]
  - PAIN [None]
  - TOOTH ABSCESS [None]
  - DIZZINESS [None]
  - POLYNEUROPATHY [None]
  - SPINAL CLAUDICATION [None]
  - METASTASES TO LUNG [None]
  - ARTHRALGIA [None]
  - OSTEOARTHRITIS [None]
  - LIGAMENT SPRAIN [None]
  - EXCORIATION [None]
  - GROIN ABSCESS [None]
  - HYPOTHYROIDISM [None]
  - PALMAR-PLANTAR ERYTHRODYSAESTHESIA SYNDROME [None]
  - ANXIETY [None]
  - ACTINOMYCOSIS [None]
  - METABOLIC SYNDROME [None]
  - GASTROOESOPHAGEAL REFLUX DISEASE [None]
  - APHTHOUS STOMATITIS [None]
  - FALL [None]
  - PHARYNGITIS [None]
  - CELLULITIS [None]
  - PULMONARY EMBOLISM [None]
  - GLUCOSE TOLERANCE IMPAIRED [None]
  - PRIMARY SEQUESTRUM [None]
  - HEADACHE [None]
  - OTITIS MEDIA ACUTE [None]
  - SPINAL COMPRESSION FRACTURE [None]
  - AMNESIA [None]
  - PNEUMONIA [None]
  - BLOOD PRESSURE INCREASED [None]
  - WEIGHT INCREASED [None]
  - ACUTE SINUSITIS [None]
  - HEAD INJURY [None]
  - VARICOSE VEIN [None]
  - OSTEONECROSIS OF JAW [None]
  - BRONCHIAL HYPERREACTIVITY [None]
  - ORTHOSTATIC HYPOTENSION [None]
  - COUGH [None]
  - PYREXIA [None]
  - DIARRHOEA [None]
  - DIVERTICULUM INTESTINAL [None]
  - PULMONARY INFARCTION [None]
  - OBSTRUCTIVE AIRWAYS DISORDER [None]
